FAERS Safety Report 8649948 (Version 2)
Quarter: 2012Q4

REPORT INFORMATION
  Report Type: 
  Country: CA (occurrence: CA)
  Receive Date: 20120705
  Receipt Date: 20120906
  Transmission Date: 20130627
  Serious: Yes (Other)
  Sender: FDA-Public Use
  Company Number: CA-GENZYME-FABR-1002592

PATIENT
  Age: 51 Year
  Sex: Female
  Weight: 77.7 kg

DRUGS (22)
  1. FABRAZYME [Suspect]
     Indication: FABRY^S DISEASE
     Dosage: 90 mg, q2w
     Route: 042
     Dates: start: 20070525
  2. TRAMADOL [Concomitant]
     Indication: PRODUCT USED FOR UNKNOWN INDICATION
     Dosage: UNK mg, UNK
     Route: 065
  3. TRAMADOL [Concomitant]
     Dosage: 300 mg, UNK
     Route: 065
     Dates: start: 20120110
  4. CYMBALTA [Concomitant]
     Indication: SUICIDE ATTEMPT
     Dosage: 30 mg, bid
     Route: 048
  5. NITRAZEPAM [Concomitant]
     Indication: SLEEP DISORDER
     Dosage: 10 mg, qd
     Route: 065
     Dates: start: 201005, end: 20111011
  6. NITRAZEPAM [Concomitant]
     Dosage: 15 mg, qd
     Route: 065
     Dates: start: 20111011
  7. DIOVAN [Concomitant]
     Indication: BLOOD PRESSURE INCREASED
     Dosage: 160 mg, qd
     Route: 048
     Dates: start: 200608
  8. DIOVAN [Concomitant]
     Indication: PROTEINURIA
  9. TIAZAC [Concomitant]
     Indication: BLOOD PRESSURE INCREASED
     Dosage: 300 mg, qd
     Route: 048
     Dates: start: 201002
  10. TIAZAC [Concomitant]
     Indication: PROPHYLAXIS
  11. PANTOLOC [Concomitant]
     Indication: GASTROOESOPHAGEAL REFLUX DISEASE
     Dosage: 40 mg, qd
     Route: 048
     Dates: start: 2006
  12. TYLENOL [Concomitant]
     Indication: PREMEDICATION
     Dosage: 2 tablets, once
     Route: 048
     Dates: start: 201009, end: 20110225
  13. ZOCOR [Concomitant]
     Indication: BLOOD CHOLESTEROL INCREASED
     Dosage: 20 mg, qd
     Route: 048
     Dates: start: 20111007
  14. CYMBALTA [Concomitant]
     Indication: DEPRESSION
     Dosage: 30 mg, qd
     Route: 048
  15. CYMBALTA [Concomitant]
     Dosage: 30 mg, qd
     Route: 048
     Dates: start: 20120211, end: 201204
  16. CYMBALTA [Concomitant]
     Dosage: 60 mg, qd
     Route: 048
     Dates: start: 201204, end: 20120511
  17. CYMBALTA [Concomitant]
     Dosage: 130 mg, bid
     Route: 048
     Dates: start: 20120511
  18. SYNTHROID [Concomitant]
     Indication: HYPOTHYROIDISM
     Dosage: 0.175 mg, qd
     Route: 048
     Dates: start: 1996
  19. LYRICA [Concomitant]
     Indication: PAIN
     Dosage: 150 mg, bid
     Dates: start: 201011, end: 20110321
  20. LYRICA [Concomitant]
     Dosage: 225 mg, qd
     Route: 048
     Dates: start: 20110321, end: 201203
  21. LYRICA [Concomitant]
     Dosage: 90 mg, qd
     Route: 048
     Dates: start: 201203, end: 20120511
  22. LYRICA [Concomitant]
     Dosage: 225 mg, qd
     Route: 048
     Dates: start: 20120511

REACTIONS (1)
  - Suicide attempt [Recovered/Resolved]
